FAERS Safety Report 18860794 (Version 3)
Quarter: 2022Q1

REPORT INFORMATION
  Report Type: Spontaneous
  Country: HK (occurrence: HK)
  Receive Date: 20210208
  Receipt Date: 20220328
  Transmission Date: 20220423
  Serious: Yes (Life-Threatening, Hospitalization, Disabling, Other)
  Sender: FDA-Public Use
  Company Number: HK-SERVIER-S21000885

PATIENT

DRUGS (5)
  1. ONCASPAR [Suspect]
     Active Substance: PEGASPARGASE
     Indication: B-cell type acute leukaemia
     Dosage: 1425, IU
     Route: 042
     Dates: start: 20200729, end: 20200729
  2. TN UNSPECIFIED [Concomitant]
     Indication: B-cell type acute leukaemia
     Dosage: 3 MG, BD
     Route: 048
     Dates: start: 20200810, end: 20200813
  3. TN UNSPECIFIED [Concomitant]
     Indication: B-cell type acute leukaemia
     Dosage: 1.1 MG, 3X A WEEK
     Route: 042
     Dates: start: 20200727, end: 20200810
  4. TN UNSPECIFIED [Concomitant]
     Indication: Gastrooesophageal reflux disease
     Dosage: 10 MG, QD
     Route: 048
     Dates: start: 20200810, end: 20200813
  5. TN UNSPECIFIED [Concomitant]
     Indication: Antibiotic prophylaxis
     Dosage: 70 MG, 1X A MONTH
     Route: 042
     Dates: start: 202002

REACTIONS (9)
  - Shock [Not Recovered/Not Resolved]
  - Pleural effusion [Not Recovered/Not Resolved]
  - Oedema [Not Recovered/Not Resolved]
  - Colitis ischaemic [Unknown]
  - Pancreatitis chronic [Unknown]
  - Pancreatitis necrotising [Not Recovered/Not Resolved]
  - Oedematous pancreatitis [Not Recovered/Not Resolved]
  - Ascites [Not Recovered/Not Resolved]
  - Systemic inflammatory response syndrome [Unknown]

NARRATIVE: CASE EVENT DATE: 20200813
